FAERS Safety Report 22611109 (Version 3)
Quarter: 2023Q2

REPORT INFORMATION
  Report Type: Report from Study
  Country: IT (occurrence: None)
  Receive Date: 20230616
  Receipt Date: 20230626
  Transmission Date: 20230721
  Serious: Yes (Death)
  Sender: FDA-Public Use
  Company Number: IT-ROCHE-3367618

PATIENT
  Age: 61 Year
  Sex: Male
  Weight: 75 kg

DRUGS (10)
  1. GLOFITAMAB [Suspect]
     Active Substance: GLOFITAMAB
     Indication: B-cell lymphoma
     Dosage: ON 05-JAN-2023 11:21 AM TO 3:21 PM, THE PATIENT RECEIVED MOST RECENT DOSE OF GLOFITAMAB AT 30 MG PRI
     Route: 042
     Dates: start: 20221222
  2. OBINUTUZUMAB [Suspect]
     Active Substance: OBINUTUZUMAB
     Indication: B-cell lymphoma
     Dosage: ON THE SAME DAY AT 1:21 PM TO 6:06 PM, THE PATIENT RECEIVED MOST RECENT DOSE OF OBINUTUZUMAB AT 1000
     Route: 042
     Dates: start: 20221215
  3. TOCILIZUMAB [Suspect]
     Active Substance: TOCILIZUMAB
     Indication: B-cell lymphoma
     Dosage: ON 29-DEC-2022 AT 10:07 PM TO 11:14 PM, THE PATIENT RECEIVED MOST RECENT DOSE OF TOCILIZUMAB AT 580
     Route: 042
     Dates: start: 20221223
  4. FLUDEOXYGLUCOSE F-18 [Suspect]
     Active Substance: FLUDEOXYGLUCOSE F-18
     Indication: B-cell lymphoma
     Dosage: ON 15-FEB-2023, THE PATIENT WAS RECEIVED MOST RECENT DOSE OF FLUDEOXYGLUCOSE (18F)
     Route: 042
     Dates: start: 20221213
  5. ACYCLOVIR [Concomitant]
     Active Substance: ACYCLOVIR
     Route: 048
     Dates: start: 2021
  6. OMEPRAZOLE [Concomitant]
     Active Substance: OMEPRAZOLE
     Route: 048
     Dates: start: 2021
  7. FEBUXOSTAT [Concomitant]
     Active Substance: FEBUXOSTAT
     Indication: Hyperuricaemia
     Route: 048
     Dates: start: 2021
  8. BACTRIM [Concomitant]
     Active Substance: SULFAMETHOXAZOLE\TRIMETHOPRIM
     Route: 048
     Dates: start: 2021
  9. VALGANCICLOVIR [Concomitant]
     Active Substance: VALGANCICLOVIR
     Indication: Cytomegalovirus infection reactivation
     Route: 048
     Dates: start: 20221215
  10. ERYTHROPOIETIN [Concomitant]
     Active Substance: ERYTHROPOIETIN
     Dosage: 10000 U
     Route: 058
     Dates: start: 20221215

REACTIONS (1)
  - Death [Fatal]

NARRATIVE: CASE EVENT DATE: 20230404
